FAERS Safety Report 6885677-3 (Version None)
Quarter: 2010Q3

REPORT INFORMATION
  Report Type: 
  Country: None (occurrence: None)
  Receive Date: 20100729
  Receipt Date: 20080129
  Transmission Date: 20110219
  Serious: Yes (Other)
  Sender: FDA-Public Use
  Company Number: US-PFIZER INC-2008009073

PATIENT
  Age: 60 Year
  Sex: Male
  Weight: 62.727 kg

DRUGS (3)
  1. CELEBREX [Suspect]
     Indication: KNEE ARTHROPLASTY
     Dates: start: 20080101, end: 20080101
  2. COUMADIN [Concomitant]
  3. PLAVIX [Concomitant]

REACTIONS (2)
  - GASTROINTESTINAL HAEMORRHAGE [None]
  - PEPTIC ULCER [None]
